FAERS Safety Report 6933844-2 (Version None)
Quarter: 2010Q3

REPORT INFORMATION
  Report Type: 
  Country: None (occurrence: None)
  Receive Date: 20100820
  Receipt Date: 20100813
  Transmission Date: 20110219
  Serious: Yes (Hospitalization)
  Sender: FDA-Public Use
  Company Number: US-ELI_LILLY_AND_COMPANY-US201007004330

PATIENT
  Sex: Male

DRUGS (13)
  1. GEMCITABINE HCL [Suspect]
     Indication: PANCREATIC CARCINOMA
     Dosage: 1000 MG/M2, OTHER
     Route: 042
     Dates: start: 20100707, end: 20100712
  2. LUNESTA [Concomitant]
     Indication: INSOMNIA
     Route: 048
     Dates: start: 20100629, end: 20100629
  3. HYDROCODONE BITARTRATE [Concomitant]
     Indication: PAIN
     Route: 048
     Dates: start: 20100629
  4. PAPAYA ENZYME [Concomitant]
     Indication: DYSPEPSIA
     Route: 048
     Dates: start: 20100629
  5. BENICAR [Concomitant]
     Indication: HYPERTENSION
     Route: 048
     Dates: start: 19950101
  6. AMLODIPINE [Concomitant]
     Indication: HYPERTENSION
     Route: 048
     Dates: start: 20071102
  7. VITAMIN D [Concomitant]
     Indication: VITAMIN SUPPLEMENTATION
     Dosage: UNK, UNK
     Route: 048
     Dates: start: 20100629
  8. MELATONIN [Concomitant]
     Indication: INSOMNIA
     Route: 048
     Dates: start: 20100629, end: 20100629
  9. NAPROXEN [Concomitant]
     Indication: NAUSEA
     Route: 048
     Dates: start: 20071102, end: 20100629
  10. REGLAN [Concomitant]
     Indication: NAUSEA
     Route: 048
     Dates: start: 20100629
  11. PRILOSEC [Concomitant]
     Indication: GASTROOESOPHAGEAL REFLUX DISEASE
     Route: 048
     Dates: start: 20100629
  12. ACETAMINOPHEN [Concomitant]
     Indication: PYREXIA
     Route: 048
     Dates: start: 20071102
  13. GINKGO BILOBA [Concomitant]
     Indication: VITAMIN SUPPLEMENTATION
     Route: 048
     Dates: start: 20071102

REACTIONS (1)
  - CHOLANGITIS [None]
